FAERS Safety Report 4393284-X (Version None)
Quarter: 2004Q3

REPORT INFORMATION
  Report Type: 
  Country: None (occurrence: None)
  Receive Date: 20040708
  Receipt Date: 20040610
  Transmission Date: 20050211
  Serious: Yes (Hospitalization)
  Sender: FDA-Public Use
  Company Number: US-MERCK-0406USA01264

PATIENT
  Age: 72 Year
  Sex: Male
  Weight: 63 kg

DRUGS (14)
  1. ALBUTEROL [Concomitant]
     Route: 055
  2. XANAX [Concomitant]
     Route: 065
  3. PLAVIX [Concomitant]
     Route: 065
  4. ZETIA [Suspect]
     Indication: BLOOD CHOLESTEROL INCREASED
     Route: 048
     Dates: start: 20031001, end: 20040316
  5. ZETIA [Suspect]
     Indication: HYPERLIPIDAEMIA
     Route: 048
     Dates: start: 20031001, end: 20040316
  6. ADVAIR DISKUS 100/50 [Concomitant]
     Route: 055
  7. AMARYL [Concomitant]
     Route: 065
  8. HYDRODIURIL [Concomitant]
     Route: 048
  9. ZESTRIL [Concomitant]
     Route: 065
  10. GLUCOPHAGE [Concomitant]
     Route: 065
  11. SINGULAIR [Concomitant]
     Route: 048
  12. PRILOSEC [Concomitant]
     Route: 065
  13. ZOLOFT [Concomitant]
     Route: 065
  14. THEO-DUR [Concomitant]
     Route: 065

REACTIONS (3)
  - ALANINE AMINOTRANSFERASE INCREASED [None]
  - BLOOD ALKALINE PHOSPHATASE INCREASED [None]
  - PNEUMONIA [None]
